FAERS Safety Report 6196447-6 (Version None)
Quarter: 2009Q2

REPORT INFORMATION
  Report Type: 
  Country: None (occurrence: None)
  Receive Date: 20090520
  Receipt Date: 20090513
  Transmission Date: 20091009
  Serious: Yes (Hospitalization, Other)
  Sender: FDA-Public Use
  Company Number: CA-NOVOPROD-287180

PATIENT
  Age: 64 Year
  Sex: Female
  Weight: 54 kg

DRUGS (12)
  1. INSULIN DETEMIR 2.4 MOL/L [Suspect]
     Indication: TYPE 2 DIABETES MELLITUS
     Dosage: 6 TAB, QD
     Route: 058
     Dates: start: 20090309
  2. SYNTHROID [Concomitant]
     Dosage: .1 MG, QD
     Route: 048
     Dates: start: 20060101
  3. METFORMIN HCL [Concomitant]
     Dosage: 2000 MG, QD
     Route: 048
     Dates: start: 19910101
  4. DIAMICRON [Concomitant]
     Dosage: 320 MG, QD
     Route: 048
     Dates: start: 20070101
  5. AVANDIA                            /01445801/ [Concomitant]
     Dosage: 8 MG, QD
     Route: 048
     Dates: start: 20040101
  6. MONOCOR [Concomitant]
     Dosage: 2.5 MG, QD
     Route: 048
     Dates: start: 20080101
  7. CRESTOR [Concomitant]
     Dosage: 10 MG, QD
     Route: 048
     Dates: start: 20040101
  8. ALTACE [Concomitant]
     Dosage: 10 MG, QD
     Route: 048
     Dates: start: 20080101
  9. DETROL                             /01350201/ [Concomitant]
     Route: 048
     Dates: start: 20080101
  10. IRON [Concomitant]
     Dosage: 600 MEQ, QD
     Route: 048
     Dates: start: 20080101
  11. PANTOLOC                           /01263201/ [Concomitant]
     Dosage: 40 MG, QD
     Route: 048
     Dates: start: 20080101
  12. VITAMIN B-12 [Concomitant]
     Dosage: 1200 MG, QD
     Route: 048
     Dates: start: 20080129, end: 20080904

REACTIONS (1)
  - CEREBROVASCULAR ACCIDENT [None]
